FAERS Safety Report 11120309 (Version 1)
Quarter: 2015Q2

REPORT INFORMATION
  Report Type: Spontaneous
  Country: US (occurrence: US)
  Receive Date: 20150518
  Receipt Date: 20150518
  Transmission Date: 20150821
  Serious: Yes (Hospitalization)
  Sender: FDA-Public Use
  Company Number: US-B.I. PHARMACEUTICALS,INC./RIDGEFIELD-2015-BI-25040BP

PATIENT
  Age: 79 Year
  Sex: Male
  Weight: 64 kg

DRUGS (2)
  1. TRADJENTA [Suspect]
     Active Substance: LINAGLIPTIN
     Indication: DIABETES MELLITUS
     Dosage: 5 MG
     Route: 048
     Dates: start: 2014
  2. WARFARIN [Concomitant]
     Active Substance: WARFARIN
     Indication: CARDIAC VALVE DISEASE
     Dosage: 5 MG
     Route: 048
     Dates: end: 201409

REACTIONS (6)
  - Weight decreased [Recovered/Resolved]
  - Fatigue [Recovered/Resolved]
  - Hypotension [Recovered/Resolved]
  - Asthenia [Recovered/Resolved]
  - Gastric ulcer haemorrhage [Recovered/Resolved]
  - Arterial occlusive disease [Recovered/Resolved]

NARRATIVE: CASE EVENT DATE: 201408
